FAERS Safety Report 25566081 (Version 1)
Quarter: 2025Q3

REPORT INFORMATION
  Report Type: Spontaneous
  Country: EU (occurrence: EU)
  Receive Date: 20250716
  Receipt Date: 20250716
  Transmission Date: 20251020
  Serious: Yes (Hospitalization)
  Sender: EISAI
  Company Number: None

PATIENT
  Age: 84 Year
  Sex: Male

DRUGS (3)
  1. ARICEPT [Suspect]
     Active Substance: DONEPEZIL HYDROCHLORIDE
     Indication: Dementia Alzheimer^s type
     Dates: start: 202501, end: 20250612
  2. ARICEPT [Suspect]
     Active Substance: DONEPEZIL HYDROCHLORIDE
  3. PAROXETINE [Concomitant]
     Active Substance: PAROXETINE
     Indication: Dementia Alzheimer^s type
     Dates: start: 20250507, end: 20250621

REACTIONS (3)
  - Myoclonic epilepsy [Recovered/Resolved]
  - Decreased appetite [Recovered/Resolved]
  - Rash [Recovered/Resolved]

NARRATIVE: CASE EVENT DATE: 20250501
